FAERS Safety Report 6424865-7 (Version None)
Quarter: 2009Q4

REPORT INFORMATION
  Report Type: 
  Country: None (occurrence: None)
  Receive Date: 20091102
  Receipt Date: 20091102
  Transmission Date: 20100525
  Serious: No
  Sender: FDA-Public Use
  Company Number: None

PATIENT
  Age: 70 Year
  Sex: Male

DRUGS (2)
  1. IRON DEXTRAN [Suspect]
     Indication: GASTROINTESTINAL HAEMORRHAGE
     Dosage: 1500 MG ONCE IV
     Route: 042
     Dates: start: 20081119, end: 20081119
  2. IRON DEXTRAN [Suspect]
     Indication: IRON DEFICIENCY ANAEMIA
     Dosage: 1500 MG ONCE IV
     Route: 042
     Dates: start: 20081119, end: 20081119

REACTIONS (3)
  - BACK PAIN [None]
  - DYSPNOEA [None]
  - ERYTHEMA MULTIFORME [None]
